FAERS Safety Report 19020174 (Version 1)
Quarter: 2021Q1

REPORT INFORMATION
  Report Type: Spontaneous
  Country: US (occurrence: US)
  Receive Date: 20210317
  Receipt Date: 20210317
  Transmission Date: 20210420
  Serious: Yes (Death)
  Sender: FDA-Public Use
  Company Number: None

PATIENT
  Age: 79 Year
  Sex: Male

DRUGS (19)
  1. PROMACTA [Suspect]
     Active Substance: ELTROMBOPAG OLAMINE
     Indication: IMMUNE THROMBOCYTOPENIA
  2. DILTIAZEM HCL ER BEADS [Concomitant]
  3. FOLBIC RF [Concomitant]
  4. ULORIC [Concomitant]
     Active Substance: FEBUXOSTAT
  5. PRAVASTATIN SODIUM. [Concomitant]
     Active Substance: PRAVASTATIN SODIUM
  6. TAMSULOSIN HCL [Concomitant]
     Active Substance: TAMSULOSIN HYDROCHLORIDE
  7. CARAFATE [Concomitant]
     Active Substance: SUCRALFATE
  8. LEVOTHYROXINE SODIUM. [Concomitant]
     Active Substance: LEVOTHYROXINE SODIUM
  9. LYRICA [Concomitant]
     Active Substance: PREGABALIN
  10. ASPIRIN ADULT LOW DOSE [Concomitant]
     Active Substance: ASPIRIN
  11. FOLIC ACID. [Concomitant]
     Active Substance: FOLIC ACID
  12. MAGNESIUM [Concomitant]
     Active Substance: MAGNESIUM
  13. BUMEX [Concomitant]
     Active Substance: BUMETANIDE
  14. METOPROLOL SUCCINATE ER [Concomitant]
     Active Substance: METOPROLOL SUCCINATE
  15. OMEPRAZOLE. [Concomitant]
     Active Substance: OMEPRAZOLE
  16. PREDNISONE. [Concomitant]
     Active Substance: PREDNISONE
  17. PROSCAR [Concomitant]
     Active Substance: FINASTERIDE
  18. PLAVIX [Concomitant]
     Active Substance: CLOPIDOGREL BISULFATE
  19. TRELEGY ELLIPTA [Concomitant]
     Active Substance: FLUTICASONE FUROATE\UMECLIDINIUM BROMIDE\VILANTEROL TRIFENATATE

REACTIONS (1)
  - Death [None]

NARRATIVE: CASE EVENT DATE: 20210317
